FAERS Safety Report 17020283 (Version 2)
Quarter: 2019Q4

REPORT INFORMATION
  Report Type: Spontaneous
  Country: JP (occurrence: JP)
  Receive Date: 20191112
  Receipt Date: 20191211
  Transmission Date: 20200122
  Serious: Yes (Hospitalization, Other)
  Sender: FDA-Public Use
  Company Number: JP-BRISTOL-MYERS SQUIBB COMPANY-BMS-2018-084250

PATIENT
  Age: 71 Year
  Sex: Male
  Weight: 55 kg

DRUGS (1)
  1. OPDIVO [Suspect]
     Active Substance: NIVOLUMAB
     Indication: GASTRIC CANCER
     Dosage: 170 MG/KG, Q2WK
     Route: 041
     Dates: start: 20180111

REACTIONS (6)
  - Myalgia [Recovering/Resolving]
  - Myositis [Recovering/Resolving]
  - Ketoacidosis [Recovered/Resolved]
  - Fulminant type 1 diabetes mellitus [Recovered/Resolved]
  - Autoimmune hepatitis [Recovering/Resolving]
  - Blood creatine phosphokinase increased [Recovering/Resolving]

NARRATIVE: CASE EVENT DATE: 20180221
